FAERS Safety Report 25947343 (Version 1)
Quarter: 2025Q4

REPORT INFORMATION
  Report Type: Spontaneous
  Country: US (occurrence: US)
  Receive Date: 20251022
  Receipt Date: 20251022
  Transmission Date: 20260117
  Serious: Yes (Other)
  Sender: DR REDDYS
  Company Number: US-MLMSERVICE-20251006-PI670041-00101-1

PATIENT
  Age: 6 Decade
  Sex: Female

DRUGS (2)
  1. GEMCITABINE [Suspect]
     Active Substance: GEMCITABINE
     Indication: Transitional cell cancer of the renal pelvis and ureter
     Dosage: GEMCITABINE 1000 MG/M2 ON DAY 1 AND DAY 8 EVERY 3 WEEKS; RECEIVED FOUR CYCLES
     Route: 065
  2. CISPLATIN [Suspect]
     Active Substance: CISPLATIN
     Indication: Transitional cell cancer of the renal pelvis and ureter
     Dosage: SPLIT-DOSE CISPLATIN 35 MG/M2 ON DAY 1 AND DAY 8 EVERY 3 WEEKS; RECEIVED FOUR CYCLES
     Route: 065

REACTIONS (3)
  - Neuropathy peripheral [Unknown]
  - Gastrointestinal disorder [Unknown]
  - Fatigue [Unknown]
